FAERS Safety Report 9657070 (Version 2)
Quarter: 2013Q4

REPORT INFORMATION
  Report Type: Report from Study
  Country: FR (occurrence: FR)
  Receive Date: 20131030
  Receipt Date: 20131030
  Transmission Date: 20140711
  Serious: Yes (Hospitalization)
  Sender: FDA-Public Use
  Company Number: FR-B.I. PHARMACEUTICALS,INC./RIDGEFIELD-2012-RD-00445EU

PATIENT
  Age: 43 Year
  Sex: Male
  Weight: 73 kg

DRUGS (3)
  1. TRIAL PROCEDURE [Suspect]
     Indication: TYPE 2 DIABETES MELLITUS
  2. GLIMEPIRIDE [Suspect]
     Indication: TYPE 2 DIABETES MELLITUS
     Dosage: 3 MG
     Route: 048
     Dates: start: 20111217, end: 20120626
  3. ATARAX [Concomitant]
     Indication: VIPOMA
     Dosage: 50 MG
     Route: 002
     Dates: start: 20120709, end: 20120813

REACTIONS (1)
  - Vipoma [Not Recovered/Not Resolved]
